FAERS Safety Report 8849137 (Version 3)
Quarter: 2013Q2

REPORT INFORMATION
  Report Type: Spontaneous
  Country: US (occurrence: US)
  Receive Date: 20121019
  Receipt Date: 20130402
  Transmission Date: 20140414
  Serious: Yes (Hospitalization)
  Sender: FDA-Public Use
  Company Number: US-BAYER-2012-108194

PATIENT
  Age: 44 Year
  Sex: Female
  Weight: 77.1 kg

DRUGS (9)
  1. YAZ [Suspect]
     Indication: CONTRACEPTION
     Dosage: UNK
     Dates: start: 200903, end: 200906
  2. PHENTERMINE [Concomitant]
     Dosage: 37.5 MG, UNK
     Dates: start: 20090327
  3. NIRAVAM [Concomitant]
     Indication: ANXIETY
  4. ARMOUR THYROID [Concomitant]
     Indication: HYPOTHYROIDISM
     Dosage: 60 MG, UNK
     Dates: start: 20090628
  5. ZOLPIDEM TARTRATE [Concomitant]
     Dosage: UNK
     Dates: start: 20090327
  6. VOLTAREN [Concomitant]
     Dosage: UNK
     Dates: start: 20090423
  7. TRAMADOL HYDROCHLORIDE [Concomitant]
     Dosage: 50 MG, UNK
  8. SKELAXIN [Concomitant]
     Dosage: 800 MG, UNK
  9. ALPRAZOLAM [Concomitant]
     Dosage: 1 MG, UNK

REACTIONS (7)
  - Deep vein thrombosis [None]
  - Oedema peripheral [None]
  - Injury [None]
  - Pain in extremity [None]
  - Pain [None]
  - Emotional distress [None]
  - Pain [None]
